FAERS Safety Report 21307159 (Version 2)
Quarter: 2022Q4

REPORT INFORMATION
  Report Type: Spontaneous
  Country: US (occurrence: None)
  Receive Date: 20220908
  Receipt Date: 20221010
  Transmission Date: 20230112
  Serious: No
  Sender: FDA-Public Use
  Company Number: 2022A299623

PATIENT
  Sex: Female

DRUGS (1)
  1. TEZSPIRE [Suspect]
     Active Substance: TEZEPELUMAB-EKKO
     Route: 065
     Dates: start: 202207, end: 202208

REACTIONS (4)
  - Dizziness [Unknown]
  - Throat irritation [Unknown]
  - Flushing [Unknown]
  - Dyspnoea [Unknown]
